FAERS Safety Report 15621499 (Version 1)
Quarter: 2018Q4

REPORT INFORMATION
  Report Type: Spontaneous
  Country: US (occurrence: US)
  Receive Date: 20181115
  Receipt Date: 20181115
  Transmission Date: 20190205
  Serious: Yes (Other)
  Sender: FDA-Public Use
  Company Number: US-GLAXOSMITHKLINE-US2018204723

PATIENT
  Age: 74 Year
  Sex: Female

DRUGS (4)
  1. ANORO ELLIPTA [Suspect]
     Active Substance: UMECLIDINIUM BROMIDE\VILANTEROL TRIFENATATE
     Indication: CHRONIC OBSTRUCTIVE PULMONARY DISEASE
     Dosage: 1 PUFF(S), QD
     Route: 055
     Dates: start: 20181029
  2. ADVIL [Concomitant]
     Active Substance: IBUPROFEN
  3. OXYGEN. [Concomitant]
     Active Substance: OXYGEN
  4. SINGULAIR [Concomitant]
     Active Substance: MONTELUKAST SODIUM

REACTIONS (5)
  - Peripheral swelling [Unknown]
  - Joint swelling [Unknown]
  - Wrong technique in device usage process [Recovered/Resolved]
  - Urinary retention [Unknown]
  - Cough [Not Recovered/Not Resolved]

NARRATIVE: CASE EVENT DATE: 20181029
